FAERS Safety Report 6723197-7 (Version None)
Quarter: 2010Q2

REPORT INFORMATION
  Report Type: 
  Country: None (occurrence: None)
  Receive Date: 20100513
  Receipt Date: 20100504
  Transmission Date: 20101027
  Serious: Yes (Hospitalization, Disabling)
  Sender: FDA-Public Use
  Company Number: US-JNJFOC-20090503475

PATIENT
  Sex: Male

DRUGS (2)
  1. LEVAQUIN [Suspect]
     Indication: INFECTION PROPHYLAXIS
     Dosage: PATIENT WAS PRESCRIBED LEVAQUIN ON THREE SEPARATE OCCASIONS.
  2. LEVAQUIN [Suspect]
     Indication: INFECTION
     Dosage: PATIENT WAS PRESCRIBED LEVAQUIN ON THREE SEPARATE OCCASIONS.

REACTIONS (4)
  - ANXIETY [None]
  - LIGAMENT RUPTURE [None]
  - MENISCUS LESION [None]
  - TENDON RUPTURE [None]
